FAERS Safety Report 17181034 (Version 8)
Quarter: 2020Q2

REPORT INFORMATION
  Report Type: Report from Study
  Country: US (occurrence: US)
  Receive Date: 20191219
  Receipt Date: 20200512
  Transmission Date: 20200713
  Serious: Yes (Hospitalization, Other)
  Sender: FDA-Public Use
  Company Number: US-ACTELION PHARMACEUTICALS LTD.-A-US2019-199485

PATIENT
  Age: 82 Year
  Sex: Female
  Weight: 63.95 kg

DRUGS (3)
  1. OPSUMIT [Suspect]
     Active Substance: MACITENTAN
     Indication: PULMONARY ARTERIAL HYPERTENSION
     Dosage: 10 MG, QD
     Route: 048
  2. OFEV [Suspect]
     Active Substance: NINTEDANIB
     Indication: PRODUCT USED FOR UNKNOWN INDICATION
     Dosage: UNK
     Route: 065
  3. OFEV [Suspect]
     Active Substance: NINTEDANIB
     Dosage: 100 MG, BID
     Route: 065

REACTIONS (18)
  - Arthralgia [Unknown]
  - Vomiting [Recovering/Resolving]
  - Gastrooesophageal reflux disease [Unknown]
  - Rotator cuff repair [Unknown]
  - Diarrhoea [Unknown]
  - Staphylococcal infection [Unknown]
  - Nausea [Unknown]
  - Constipation [Unknown]
  - Abdominal distension [Unknown]
  - Fall [Unknown]
  - Sepsis [Unknown]
  - Diverticulitis [Unknown]
  - Limb operation [Unknown]
  - Upper limb fracture [Unknown]
  - Product dose omission [Unknown]
  - Viral infection [Unknown]
  - Transfusion [Unknown]
  - Gastrointestinal infection [Unknown]

NARRATIVE: CASE EVENT DATE: 20200329
